FAERS Safety Report 13162291 (Version 1)
Quarter: 2017Q1

REPORT INFORMATION
  Report Type: Spontaneous
  Country: US (occurrence: US)
  Receive Date: 20170127
  Receipt Date: 20170127
  Transmission Date: 20170428
  Serious: No
  Sender: FDA-Public Use
  Company Number: None

PATIENT
  Age: 64 Year
  Sex: Male

DRUGS (1)
  1. TACROLIMUS CAP 1MG [Suspect]
     Active Substance: TACROLIMUS

REACTIONS (5)
  - Erythema [None]
  - Dyspnoea [None]
  - Headache [None]
  - Depression [None]
  - Urticaria [None]

NARRATIVE: CASE EVENT DATE: 20170126
